FAERS Safety Report 16272281 (Version 1)
Quarter: 2019Q2

REPORT INFORMATION
  Report Type: Report from Study
  Country: US (occurrence: US)
  Receive Date: 20190503
  Receipt Date: 20190503
  Transmission Date: 20190711
  Serious: Yes (Other)
  Sender: FDA-Public Use
  Company Number: US-ACTELION-A-NJ2019-186096

PATIENT
  Age: 60 Year
  Sex: Female

DRUGS (12)
  1. ASPIRIN. [Concomitant]
     Active Substance: ASPIRIN
  2. GLUCOSAMINE SULFATE [Concomitant]
     Active Substance: GLUCOSAMINE SULFATE
  3. LIDOCAINE. [Concomitant]
     Active Substance: LIDOCAINE
  4. FUROSEMIDE. [Concomitant]
     Active Substance: FUROSEMIDE
  5. AMLODIPINE [Concomitant]
     Active Substance: AMLODIPINE BESYLATE
  6. LEVOTHYROXINE. [Concomitant]
     Active Substance: LEVOTHYROXINE
  7. OPSUMIT [Suspect]
     Active Substance: MACITENTAN
     Indication: PULMONARY HYPERTENSION
     Dosage: 10 MG, QD
     Route: 048
     Dates: start: 20160608
  8. UPTRAVI [Concomitant]
     Active Substance: SELEXIPAG
     Route: 048
  9. SILDENAFIL. [Concomitant]
     Active Substance: SILDENAFIL
  10. AZATHIOPRINE. [Concomitant]
     Active Substance: AZATHIOPRINE
  11. HUMULIN NOS [Concomitant]
     Active Substance: INSULIN HUMAN
  12. ATORVASTATIN [Concomitant]
     Active Substance: ATORVASTATIN

REACTIONS (2)
  - Musculoskeletal pain [Unknown]
  - Chest pain [Unknown]

NARRATIVE: CASE EVENT DATE: 2018
